FAERS Safety Report 5684443-4 (Version None)
Quarter: 2008Q1

REPORT INFORMATION
  Report Type: 
  Country: None (occurrence: None)
  Receive Date: 20080327
  Receipt Date: 20080327
  Transmission Date: 20080703
  Serious: Yes (Life-Threatening, Other)
  Sender: FDA-Public Use
  Company Number: None

PATIENT
  Age: 44 Year
  Sex: Female
  Weight: 55 kg

DRUGS (4)
  1. ATIVAN [Suspect]
     Indication: ANXIETY
     Dosage: 2MG  3 TIMES A DAY  PO
     Route: 048
     Dates: start: 20040607, end: 20080326
  2. ATIVAN [Suspect]
     Indication: BIPOLAR DISORDER
     Dosage: 2MG  3 TIMES A DAY  PO
     Route: 048
     Dates: start: 20040607, end: 20080326
  3. ATIVAN [Suspect]
     Indication: ANXIETY
     Dosage: 2MG  3 TIMES A DAY  PO
     Route: 048
     Dates: start: 20001007, end: 20040607
  4. ATIVAN [Suspect]
     Indication: BIPOLAR DISORDER
     Dosage: 2MG  3 TIMES A DAY  PO
     Route: 048
     Dates: start: 20001007, end: 20040607

REACTIONS (9)
  - ANAEMIA [None]
  - DRUG INEFFECTIVE [None]
  - EATING DISORDER [None]
  - IMPAIRED WORK ABILITY [None]
  - NERVOUSNESS [None]
  - PHARMACEUTICAL PRODUCT COMPLAINT [None]
  - SLEEP DISORDER [None]
  - STRESS [None]
  - THERAPEUTIC RESPONSE UNEXPECTED WITH DRUG SUBSTITUTION [None]
